FAERS Safety Report 19035766 (Version 2)
Quarter: 2022Q1

REPORT INFORMATION
  Report Type: Spontaneous
  Country: IN (occurrence: IN)
  Receive Date: 20210320
  Receipt Date: 20220311
  Transmission Date: 20220423
  Serious: No
  Sender: FDA-Public Use
  Company Number: IN-LUPIN PHARMACEUTICALS INC.-2021-03359

PATIENT
  Age: 16 Year
  Sex: Female

DRUGS (4)
  1. POTASSIUM [Suspect]
     Active Substance: POTASSIUM
     Indication: Fungal skin infection
     Dosage: UNK UNK, TID-THREE DROPS-DISSOLVING POTASSIUM IODIDE IN ABSOLUTE ALCOHOL (1 G/ML; EACH DROP CONTAINI
     Route: 048
  2. POTASSIUM [Suspect]
     Active Substance: POTASSIUM
     Dosage: UNK UNK, TID-18 DROPS-DISSOLVING POTASSIUM IODIDE IN ABSOLUTE ALCOHOL (1 G/ML; EACH DROP CONTAINING
     Route: 048
  3. ITRACONAZOLE [Concomitant]
     Active Substance: ITRACONAZOLE
     Indication: Fungal skin infection
     Dosage: 400 MILLIGRAM, BID-DOSE FOR THE FIRST 2 DAYS
     Route: 048
  4. ITRACONAZOLE [Concomitant]
     Active Substance: ITRACONAZOLE
     Dosage: 200 MILLIGRAM
     Route: 048

REACTIONS (2)
  - Gastrointestinal disorder [Unknown]
  - Rash [Unknown]
